FAERS Safety Report 7359436-1 (Version None)
Quarter: 2011Q1

REPORT INFORMATION
  Report Type: 
  Country: None (occurrence: None)
  Receive Date: 20110317
  Receipt Date: 20091124
  Transmission Date: 20110831
  Serious: No
  Sender: FDA-Public Use
  Company Number: US-PFIZER INC-2009290429

PATIENT
  Sex: Female
  Weight: 63.5 kg

DRUGS (2)
  1. ACETYLSALICYLIC ACID SRT [Suspect]
     Indication: CARDIAC DISORDER
  2. NORVASC [Suspect]
     Indication: HYPERTENSION
     Dosage: UNK

REACTIONS (2)
  - WEIGHT DECREASED [None]
  - POLLAKIURIA [None]
